FAERS Safety Report 5501358-2 (Version None)
Quarter: 2007Q4

REPORT INFORMATION
  Report Type: 
  Country: None (occurrence: None)
  Receive Date: 20071022
  Receipt Date: 20070502
  Transmission Date: 20080405
  Serious: Yes (Other)
  Sender: FDA-Public Use
  Company Number: 155957USA

PATIENT
  Age: 68 Year
  Sex: Female

DRUGS (2)
  1. CLONAZEPAM [Suspect]
     Dosage: 0.5 MG IN MORNING (0.5 MG), ORAL
     Route: 048
     Dates: start: 20070430
  2. CLONAZEPAM [Suspect]
     Dosage: 1.0 MG IN EVENING (0.25 MG), ORAL
     Route: 048
     Dates: start: 20070430

REACTIONS (1)
  - LOSS OF CONSCIOUSNESS [None]
